FAERS Safety Report 18381495 (Version 2)
Quarter: 2020Q4

REPORT INFORMATION
  Report Type: Spontaneous
  Country: US (occurrence: US)
  Receive Date: 20201014
  Receipt Date: 20201021
  Transmission Date: 20210114
  Serious: No
  Sender: FDA-Public Use
  Company Number: US-GLAXOSMITHKLINE-US2020199103

PATIENT
  Age: 65 Year
  Sex: Male

DRUGS (1)
  1. FLOVENT DISKUS [Suspect]
     Active Substance: FLUTICASONE PROPIONATE
     Indication: COUGH
     Dosage: 1 PUFF(S), BID
     Route: 055
     Dates: start: 20201002, end: 20201003

REACTIONS (8)
  - Rash [Not Recovered/Not Resolved]
  - Herpes zoster [Unknown]
  - Drug ineffective [Not Recovered/Not Resolved]
  - Insomnia [Unknown]
  - Hypersensitivity [Unknown]
  - Product use in unapproved indication [Not Recovered/Not Resolved]
  - Adverse drug reaction [Unknown]
  - Off label use [Unknown]

NARRATIVE: CASE EVENT DATE: 20201004
